FAERS Safety Report 23789123 (Version 1)
Quarter: 2024Q2

REPORT INFORMATION
  Report Type: Spontaneous
  Country: US (occurrence: None)
  Receive Date: 20240426
  Receipt Date: 20240426
  Transmission Date: 20240716
  Serious: Yes (Death, Congenital Anomaly)
  Sender: FDA-Public Use
  Company Number: 2024A097202

PATIENT
  Sex: Male

DRUGS (1)
  1. SEROQUEL [Suspect]
     Active Substance: QUETIAPINE FUMARATE
     Dosage: 800 MG OR 1000 MG AT EVERY NIGHT
     Route: 048

REACTIONS (2)
  - Maternal exposure during pregnancy [Fatal]
  - Premature baby death [Fatal]

NARRATIVE: CASE EVENT DATE: 20130101
